FAERS Safety Report 5886946-6 (Version None)
Quarter: 2008Q3

REPORT INFORMATION
  Report Type: 
  Country: None (occurrence: None)
  Receive Date: 20080915
  Receipt Date: 20080909
  Transmission Date: 20090109
  Serious: Yes (Life-Threatening)
  Sender: FDA-Public Use
  Company Number: 2008-183320-NL

PATIENT
  Age: 68 Year
  Sex: Male

DRUGS (5)
  1. VECURONIUM BROMIDE [Suspect]
     Dosage: 10 MG ONCE
     Route: 042
     Dates: start: 20040519, end: 20040519
  2. PROPOFOL [Concomitant]
  3. ONDANSETRON [Concomitant]
  4. DEXAMETHASONE [Concomitant]
  5. DROPERIDOL [Concomitant]

REACTIONS (4)
  - ANGIOEDEMA [None]
  - HAEMORRHAGE [None]
  - HYPOTENSION [None]
  - URTICARIA [None]
